FAERS Safety Report 8716277 (Version 6)
Quarter: 2013Q1

REPORT INFORMATION
  Report Type: Spontaneous
  Country: US (occurrence: US)
  Receive Date: 20120810
  Receipt Date: 20130313
  Transmission Date: 20140127
  Serious: Yes (Hospitalization, Other)
  Sender: FDA-Public Use
  Company Number: US-009507513-1207USA012892

PATIENT
  Sex: Female
  Weight: 54.42 kg

DRUGS (3)
  1. FOSAMAX [Suspect]
     Indication: OSTEOPOROSIS
     Dosage: 10 MG, QD
     Route: 048
     Dates: start: 199810, end: 200110
  2. FOSAMAX [Suspect]
     Dosage: 70 MG, QD
     Route: 048
     Dates: start: 200110, end: 200701
  3. ALENDRONATE SODIUM [Suspect]
     Indication: OSTEOPOROSIS
     Dosage: 70 MG, QW
     Route: 048
     Dates: start: 200902, end: 201005

REACTIONS (29)
  - Open reduction of fracture [Unknown]
  - Fall [Unknown]
  - Rotator cuff syndrome [Unknown]
  - Osteoarthritis [Unknown]
  - Intramedullary rod insertion [Unknown]
  - Femur fracture [Recovered/Resolved]
  - Femur fracture [Unknown]
  - Bunion [Unknown]
  - Hyperlipidaemia [Unknown]
  - Faeces discoloured [Unknown]
  - Vitamin D deficiency [Unknown]
  - Fall [Unknown]
  - Joint range of motion decreased [Unknown]
  - Blood cholesterol increased [Unknown]
  - Bursitis [Unknown]
  - Peripheral vascular disorder [Unknown]
  - Spinal osteoarthritis [Unknown]
  - Facet joint syndrome [Unknown]
  - Pelvic mass [Unknown]
  - Enthesopathy [Unknown]
  - Rib fracture [Recovering/Resolving]
  - Adverse drug reaction [Unknown]
  - Body height decreased [Unknown]
  - Diarrhoea [Unknown]
  - Dyspepsia [Unknown]
  - Musculoskeletal pain [Unknown]
  - Drug ineffective [Unknown]
  - Drug ineffective [Unknown]
  - Abdominal discomfort [Unknown]
